FAERS Safety Report 8380842-0 (Version None)
Quarter: 2012Q2

REPORT INFORMATION
  Report Type: 
  Country: None (occurrence: None)
  Receive Date: 20120523
  Receipt Date: 20120516
  Transmission Date: 20120825
  Serious: Yes (Death, Hospitalization, Other)
  Sender: FDA-Public Use
  Company Number: US-CELGENEUS-163-50794-12040850

PATIENT
  Age: 36 Year
  Sex: Male

DRUGS (20)
  1. VORICONAZOLE [Concomitant]
     Indication: FUNGAL INFECTION
     Dosage: 1 TABLET
     Route: 048
     Dates: start: 20110108
  2. ATIVAN [Concomitant]
     Indication: ANXIETY
     Dosage: 1 TABLET
     Route: 048
     Dates: start: 20111108
  3. CLARITIN [Concomitant]
     Indication: MULTIPLE ALLERGIES
     Dosage: 1 TABLET
     Route: 048
     Dates: start: 20111108
  4. ZOFRAN [Concomitant]
     Indication: NAUSEA
     Dosage: 1 TABLET
     Route: 048
     Dates: start: 20111115
  5. VIDAZA [Suspect]
     Dosage: 142 MILLIGRAM
     Route: 041
     Dates: start: 20120214, end: 20120220
  6. MIDOSTAURIN [Suspect]
     Dosage: 50 MILLIGRAM
     Route: 048
     Dates: start: 20120221, end: 20120222
  7. HYDROCODONE [Concomitant]
     Indication: PAIN
     Dosage: 1 TABLET
     Route: 048
     Dates: start: 20120109
  8. VALTREX [Concomitant]
     Indication: VIRAL INFECTION
     Dosage: 1 TABLET
     Route: 048
     Dates: start: 20100809
  9. LISINOPRIL [Concomitant]
     Indication: HYPERTENSION
     Dosage: 1 TABLET
     Route: 048
     Dates: start: 20110108
  10. AMBIEN [Concomitant]
     Dosage: 1 TABLET
     Route: 048
     Dates: start: 20111108
  11. TESSALON [Concomitant]
     Indication: COUGH
     Dosage: 1 CAPSULE
     Route: 048
     Dates: start: 20111108
  12. NEXIUM [Concomitant]
     Dosage: 1 TABLET
     Route: 048
     Dates: start: 20100809
  13. PROGRAF [Concomitant]
     Indication: PROPHYLAXIS AGAINST GRAFT VERSUS HOST DISEASE
     Dosage: 1 CAPSULE
     Route: 048
     Dates: start: 20110108
  14. ENTOCORT EC [Concomitant]
     Dosage: 1 CAPSULE
     Route: 048
     Dates: start: 20111205, end: 20120105
  15. MAGNESIUM SULFATE [Concomitant]
     Dosage: 64 MILLIEQUIVALENTS
     Route: 065
     Dates: start: 20120117
  16. HYDREA [Concomitant]
     Indication: PROPHYLAXIS
     Dosage: 500 MILLIGRAM
     Route: 065
     Dates: start: 20120109, end: 20120122
  17. METROPROLOT TARTRATE [Concomitant]
     Indication: HYPERTENSION
     Dosage: 1 TABLET
     Route: 048
     Dates: start: 20110108
  18. DILAUDID [Concomitant]
     Indication: PAIN
     Dosage: 1 TO 2 TABLETS
     Route: 048
     Dates: start: 20111108
  19. PHENERGAN [Concomitant]
     Indication: NAUSEA
     Dosage: 1 TABLET
     Route: 048
     Dates: start: 20111108
  20. MAGNESIUM OXIDE [Concomitant]
     Indication: SUPPLEMENTATION THERAPY
     Dosage: 1 TABLET
     Route: 048
     Dates: start: 20111121

REACTIONS (5)
  - ACUTE MYELOID LEUKAEMIA [None]
  - ENTEROCOCCAL INFECTION [None]
  - PSEUDOMONAL SEPSIS [None]
  - SEPTIC SHOCK [None]
  - PNEUMONIA [None]
